FAERS Safety Report 5850631-7 (Version None)
Quarter: 2008Q3

REPORT INFORMATION
  Report Type: 
  Country: None (occurrence: None)
  Receive Date: 20080818
  Receipt Date: 20080807
  Transmission Date: 20090109
  Serious: Yes (Hospitalization)
  Sender: FDA-Public Use
  Company Number: 2008BI002149

PATIENT
  Age: 56 Year
  Sex: Female
  Weight: 40.8237 kg

DRUGS (2)
  1. AVONEX [Suspect]
     Indication: MULTIPLE SCLEROSIS
     Dosage: 30 UG; QW; IM
     Route: 030
     Dates: start: 20071201
  2. DURAGESIC-50 [Concomitant]

REACTIONS (30)
  - ABDOMINAL PAIN [None]
  - ALOPECIA [None]
  - ARTHRALGIA [None]
  - ASTHENIA [None]
  - BALANCE DISORDER [None]
  - BILIARY TRACT DISORDER [None]
  - CONDITION AGGRAVATED [None]
  - CONSTIPATION [None]
  - CRYING [None]
  - EMOTIONAL DISORDER [None]
  - FEELING ABNORMAL [None]
  - FEELING OF BODY TEMPERATURE CHANGE [None]
  - HAEMORRHAGIC DISORDER [None]
  - HEADACHE [None]
  - HEPATIC LESION [None]
  - HYPOACUSIS [None]
  - INFLUENZA [None]
  - INFLUENZA LIKE ILLNESS [None]
  - INJECTION SITE PAIN [None]
  - INTESTINAL OBSTRUCTION [None]
  - INTESTINAL ULCER [None]
  - LIVER DISORDER [None]
  - MEMORY IMPAIRMENT [None]
  - MULTIPLE SCLEROSIS RELAPSE [None]
  - OESOPHAGEAL ULCER [None]
  - OROPHARYNGEAL PAIN [None]
  - PANCREATIC MASS [None]
  - RENAL DISORDER [None]
  - SKIN DISCOLOURATION [None]
  - VIRAL INFECTION [None]
